FAERS Safety Report 25716949 (Version 1)
Quarter: 2025Q3

REPORT INFORMATION
  Report Type: Spontaneous
  Country: EU (occurrence: EU)
  Receive Date: 20250822
  Receipt Date: 20250822
  Transmission Date: 20251020
  Serious: Yes (Hospitalization, Other)
  Sender: TAKEDA
  Company Number: EU-TAKEDA-TPA2013A03375

PATIENT
  Age: 34 Year
  Sex: Male
  Weight: 62 kg

DRUGS (31)
  1. HYDROCORTISONE [Suspect]
     Active Substance: HYDROCORTISONE
     Indication: Prophylaxis against transplant rejection
     Dosage: 20 MILLIGRAM, QD
  2. COLCHICINE [Interacting]
     Active Substance: COLCHICINE
     Indication: Lung transplant
     Dosage: 1 MILLIGRAM, TID
     Dates: start: 20091020
  3. COLCHICINE [Interacting]
     Active Substance: COLCHICINE
     Indication: Gout
     Dosage: 3 MILLIGRAM, QD
     Dates: end: 20091020
  4. COLCHICINE [Interacting]
     Active Substance: COLCHICINE
     Indication: Gouty arthritis
     Dosage: 2 MILLIGRAM, QD
     Dates: start: 20091021, end: 20091022
  5. COLCHICINE [Interacting]
     Active Substance: COLCHICINE
     Dosage: 1 MILLIGRAM, QD
     Dates: start: 20091023, end: 20091028
  6. COLCHICINE [Interacting]
     Active Substance: COLCHICINE
     Dosage: 9 MILLIGRAM, QD
  7. CYCLOSPORINE [Interacting]
     Active Substance: CYCLOSPORINE
     Indication: Product used for unknown indication
  8. PRAVASTATIN [Interacting]
     Active Substance: PRAVASTATIN
     Indication: Heart transplant
     Dosage: 20 MILLIGRAM, QD
  9. PRAVASTATIN [Interacting]
     Active Substance: PRAVASTATIN
     Indication: Coronary artery disease
  10. AZITHROMYCIN [Interacting]
     Active Substance: AZITHROMYCIN
     Indication: Lung transplant
     Dosage: 250 MILLIGRAM, QD
  11. AZITHROMYCIN [Interacting]
     Active Substance: AZITHROMYCIN
     Indication: Bronchiolitis
  12. COLISTIMETHATE SODIUM [Suspect]
     Active Substance: COLISTIMETHATE SODIUM
     Indication: Lung transplant
     Dosage: UNK UNK, QD
  13. COLISTIMETHATE SODIUM [Suspect]
     Active Substance: COLISTIMETHATE SODIUM
     Indication: Bronchiolitis
  14. COTRIMOXAZOLE [Suspect]
     Active Substance: SULFAMETHOXAZOLE\TRIMETHOPRIM
     Indication: Product used for unknown indication
     Dosage: 240 MILLIGRAM, 1/WEEK
  15. COTRIMOXAZOLE [Suspect]
     Active Substance: SULFAMETHOXAZOLE\TRIMETHOPRIM
     Dosage: UNK UNK, 3/WEEK
  16. CYCLOSPORINE [Suspect]
     Active Substance: CYCLOSPORINE
     Indication: Lung transplant
     Dosage: 340 MILLIGRAM, QD
  17. CYCLOSPORINE [Suspect]
     Active Substance: CYCLOSPORINE
     Indication: Prophylaxis against transplant rejection
  18. ESOMEPRAZOLE [Suspect]
     Active Substance: ESOMEPRAZOLE
     Indication: Product used for unknown indication
  19. EVEROLIMUS [Suspect]
     Active Substance: EVEROLIMUS
     Indication: Prophylaxis against transplant rejection
     Dosage: 1 MILLIGRAM, QD
  20. EVEROLIMUS [Suspect]
     Active Substance: EVEROLIMUS
     Dosage: 500 MILLIGRAM, QD
  21. IRBESARTAN [Suspect]
     Active Substance: IRBESARTAN
     Indication: Heart transplant
     Dosage: 150 MILLIGRAM, QD
  22. IRBESARTAN [Suspect]
     Active Substance: IRBESARTAN
     Indication: Coronary artery disease
  23. NICORANDIL [Suspect]
     Active Substance: NICORANDIL
     Indication: Coronary artery disease
     Dosage: 10 MILLIGRAM, QD
  24. ASPIRIN LYSINE [Concomitant]
     Active Substance: ASPIRIN LYSINE
     Indication: Coronary artery disease
     Dosage: 75 MILLIGRAM, QD
  25. CALCIUM [Concomitant]
     Active Substance: CALCIUM
     Indication: Product used for unknown indication
     Dosage: 1 GRAM, QD
  26. CHOLECALCIFEROL [Concomitant]
     Active Substance: CHOLECALCIFEROL
     Indication: Product used for unknown indication
     Dosage: 880 INTERNATIONAL UNIT, QD
  27. FERROUS ASCORBATE [Concomitant]
     Active Substance: FERROUS ASCORBATE
     Indication: Product used for unknown indication
     Dosage: 66 MILLIGRAM, QD
  28. LYSINE ACETYLSALICYLATE [Concomitant]
     Active Substance: ASPIRIN DL-LYSINE
     Indication: Heart transplant
     Dosage: 75 MILLIGRAM, QD
  29. LYSINE ACETYLSALICYLATE [Concomitant]
     Active Substance: ASPIRIN DL-LYSINE
     Indication: Coronary artery disease
  30. PANCREATIN [Concomitant]
     Active Substance: PANCRELIPASE
     Indication: Product used for unknown indication
     Dosage: 250000 INTERNATIONAL UNIT, QD
  31. COLISTIN [Concomitant]
     Active Substance: COLISTIN
     Indication: Product used for unknown indication

REACTIONS (19)
  - Cardiac failure [Recovered/Resolved]
  - Toxicity to various agents [Recovered/Resolved]
  - Hepatic cytolysis [Recovered/Resolved]
  - Rhabdomyolysis [Recovered/Resolved]
  - Multiple organ dysfunction syndrome [Recovering/Resolving]
  - Pulmonary oedema [Recovered/Resolved]
  - Renal failure [Recovered/Resolved]
  - Drug interaction [Recovered/Resolved]
  - Drug level increased [Unknown]
  - Cough [Recovering/Resolving]
  - Dyspnoea [Recovering/Resolving]
  - General physical health deterioration [Unknown]
  - Haemoptysis [Recovering/Resolving]
  - Leukocytosis [Unknown]
  - Lymphopenia [Unknown]
  - Diarrhoea [Recovered/Resolved]
  - Acute respiratory failure [Recovering/Resolving]
  - Left ventricular failure [Recovering/Resolving]
  - Overdose [Recovered/Resolved]

NARRATIVE: CASE EVENT DATE: 20090101
